FAERS Safety Report 6372899-3 (Version None)
Quarter: 2009Q3

REPORT INFORMATION
  Report Type: 
  Country: None (occurrence: None)
  Receive Date: 20090924
  Receipt Date: 20090311
  Transmission Date: 20100115
  Serious: Yes (Hospitalization)
  Sender: FDA-Public Use
  Company Number: US-ASTRAZENECA-2008UW25901

PATIENT
  Age: 36 Year
  Sex: Male
  Weight: 129.3 kg

DRUGS (5)
  1. SEROQUEL [Suspect]
     Indication: BIPOLAR DISORDER
     Dosage: 200-400MG
     Route: 048
     Dates: start: 20060525, end: 20070101
  2. SEROQUEL [Suspect]
     Indication: DEPRESSION
     Dosage: 200-400MG
     Route: 048
     Dates: start: 20060525, end: 20070101
  3. ABILIFY [Concomitant]
     Dates: start: 20070101
  4. WELLBUTRIN [Concomitant]
     Dates: start: 20020101
  5. LITHIUM [Concomitant]

REACTIONS (1)
  - DIABETES MELLITUS [None]
